FAERS Safety Report 8376069-9 (Version None)
Quarter: 2012Q2

REPORT INFORMATION
  Report Type: 
  Country: None (occurrence: None)
  Receive Date: 20120522
  Receipt Date: 20120517
  Transmission Date: 20120825
  Serious: No
  Sender: FDA-Public Use
  Company Number: PHHY2010JP52187

PATIENT
  Sex: Male

DRUGS (17)
  1. SODIUM BICARBONATE [Concomitant]
     Dosage: 3 G, UNK
     Route: 048
     Dates: start: 20090902
  2. HIRUDOID [Concomitant]
     Indication: PROPHYLAXIS
     Dates: start: 20091221
  3. TASIGNA [Suspect]
     Indication: CHRONIC MYELOID LEUKAEMIA
     Dosage: 400 MG, UNK
     Route: 048
     Dates: start: 20091111
  4. CONIEL [Concomitant]
     Dosage: 4 MG, UNK
     Route: 048
     Dates: start: 20090902
  5. TALION [Concomitant]
     Indication: PROPHYLAXIS
     Dosage: 20 MG, UNK
     Route: 048
     Dates: start: 20100524
  6. KREMEZIN [Concomitant]
     Dosage: 6 G, UNK
     Route: 048
     Dates: start: 20090901
  7. KALIMATE [Concomitant]
     Dosage: 15 G, UNK
     Route: 048
     Dates: start: 20090902
  8. GLYMESASON [Concomitant]
     Indication: PROPHYLAXIS
     Dates: start: 20091221
  9. LOXONIN [Concomitant]
     Indication: PAIN
     Dosage: 60 MG, UNK
     Route: 048
     Dates: start: 20100419
  10. FLOMOX [Concomitant]
     Indication: PROPHYLAXIS
     Dosage: 100 MG, UNK
     Route: 048
     Dates: start: 20100419
  11. ALLOPURINOL [Concomitant]
     Dosage: 200 MG, UNK
     Route: 048
     Dates: start: 20090902, end: 20100316
  12. PLATIBIT [Concomitant]
     Dosage: 0.2 UG, UNK
     Route: 048
     Dates: start: 20090902
  13. ALLOPURINOL [Concomitant]
     Dosage: 200 MG, UNK
     Route: 048
     Dates: start: 20100317
  14. ANTEBATE [Concomitant]
     Dates: start: 20091221
  15. EPINASTINE HYDROCHLORIDE [Concomitant]
     Dosage: 20 MG, UNK
     Route: 048
     Dates: start: 20100317
  16. MUCOSTA [Concomitant]
     Dosage: 100 MG, UNK
     Route: 048
     Dates: start: 20100419
  17. LIVALO [Concomitant]
     Dosage: 2 MG, UNK
     Route: 048
     Dates: start: 20090902

REACTIONS (5)
  - ANAEMIA [None]
  - BLOOD CREATININE INCREASED [None]
  - BLOOD UREA INCREASED [None]
  - BLOOD POTASSIUM DECREASED [None]
  - LIPASE INCREASED [None]
